FAERS Safety Report 13457167 (Version 1)
Quarter: 2017Q2

REPORT INFORMATION
  Report Type: Spontaneous
  Country: BR (occurrence: BR)
  Receive Date: 20170419
  Receipt Date: 20170419
  Transmission Date: 20170830
  Serious: Yes (Hospitalization, Other)
  Sender: FDA-Public Use
  Company Number: BR-BRISTOL-MYERS SQUIBB COMPANY-BMS-2017-032608

PATIENT
  Age: 60 Year
  Sex: Female
  Weight: 70.6 kg

DRUGS (1)
  1. OPDIVO [Suspect]
     Active Substance: NIVOLUMAB
     Indication: LUNG NEOPLASM MALIGNANT
     Dosage: UNK
     Route: 042
     Dates: start: 2016

REACTIONS (10)
  - Rash [Unknown]
  - Peripheral swelling [Unknown]
  - Pruritus [Unknown]
  - Pneumonia [Unknown]
  - Duodenitis [Unknown]
  - Influenza [Unknown]
  - Gastritis [Unknown]
  - Abdominal pain [Unknown]
  - Insomnia [Unknown]
  - Off label use [Unknown]

NARRATIVE: CASE EVENT DATE: 20170102
